FAERS Safety Report 8863111 (Version 1)
Quarter: 2012Q4

REPORT INFORMATION
  Report Type: Report from Study
  Country: ID (occurrence: ID)
  Receive Date: 20121026
  Receipt Date: 20121026
  Transmission Date: 20130627
  Serious: Yes (Death, Hospitalization)
  Sender: FDA-Public Use
  Company Number: ID-ROCHE-1149455

PATIENT
  Age: 55 Year
  Sex: Male
  Weight: 68 kg

DRUGS (6)
  1. TOCILIZUMAB [Suspect]
     Indication: RHEUMATOID ARTHRITIS
     Route: 041
     Dates: start: 20120718, end: 20121025
  2. ARAVA [Concomitant]
     Indication: RHEUMATOID ARTHRITIS
     Route: 048
     Dates: start: 2012, end: 20121025
  3. PANTOPRAZOLE [Concomitant]
     Indication: NAUSEA
     Route: 042
     Dates: start: 20121024, end: 20121025
  4. PANTOPRAZOLE [Concomitant]
     Indication: VOMITING
  5. ONDANSETRON [Concomitant]
     Indication: NAUSEA
     Route: 042
     Dates: start: 20121024, end: 20121025
  6. AMIODARONE [Concomitant]
     Indication: ARRHYTHMIA
     Route: 048
     Dates: start: 20121024, end: 20121025

REACTIONS (3)
  - Arrhythmia [Fatal]
  - Nausea [Recovering/Resolving]
  - Vomiting [Recovering/Resolving]
